FAERS Safety Report 8438245-6 (Version None)
Quarter: 2012Q2

REPORT INFORMATION
  Report Type: 
  Country: None (occurrence: None)
  Receive Date: 20120614
  Receipt Date: 20120606
  Transmission Date: 20120825
  Serious: Yes (Hospitalization)
  Sender: FDA-Public Use
  Company Number: IE-BAXTER-2012BAX006838

PATIENT
  Sex: Female

DRUGS (16)
  1. DIFENE [Concomitant]
     Indication: PAIN
     Route: 048
  2. LOMOTIL [Concomitant]
     Dosage: AS NEEDED
     Route: 048
  3. NEXIUM [Concomitant]
     Route: 048
  4. ENBREL [Concomitant]
     Route: 058
  5. CIPROFLOXACIN [Suspect]
     Route: 042
     Dates: start: 20120517
  6. MICARDIS [Concomitant]
     Route: 048
  7. SODIUM CHLORIDE INTRAVENOUS INFUSION BP 0.9% W/V [Suspect]
     Route: 042
     Dates: start: 20120517
  8. LYRICA [Concomitant]
     Indication: PAIN
     Route: 048
  9. METHOTREXATE [Concomitant]
     Indication: RHEUMATOID ARTHRITIS
     Route: 048
  10. LANTUS [Concomitant]
     Indication: DIABETES MELLITUS
     Dosage: AS PER BSL
     Route: 058
  11. CALCICHEW D3 FORTE [Concomitant]
     Indication: RHEUMATOID ARTHRITIS
     Route: 048
  12. LEUCOVORIN CALCIUM [Concomitant]
     Indication: RHEUMATOID ARTHRITIS
     Route: 048
  13. DIFENE [Concomitant]
     Dosage: AS NEEDED
     Route: 061
  14. SPASMONAL [Concomitant]
     Indication: RHEUMATOID ARTHRITIS
     Route: 048
  15. ACTRAPID [Concomitant]
     Indication: DIABETES MELLITUS
     Dosage: AS PER BSL
     Route: 058
  16. DELTACORTRIL [Concomitant]
     Indication: RHEUMATOID ARTHRITIS
     Route: 048

REACTIONS (4)
  - MALAISE [None]
  - VOMITING [None]
  - NAUSEA [None]
  - EATING DISORDER [None]
